FAERS Safety Report 18872373 (Version 1)
Quarter: 2021Q1

REPORT INFORMATION
  Report Type: Spontaneous
  Country: US (occurrence: US)
  Receive Date: 20210209
  Receipt Date: 20210209
  Transmission Date: 20210420
  Serious: Yes (Hospitalization)
  Sender: FDA-Public Use
  Company Number: None

PATIENT
  Sex: Female

DRUGS (11)
  1. ALBUTEROL AER [Concomitant]
     Active Substance: ALBUTEROL
  2. FLUOXETINE [Concomitant]
     Active Substance: FLUOXETINE HYDROCHLORIDE
  3. FEBUXOSTAT. [Concomitant]
     Active Substance: FEBUXOSTAT
  4. TADALAFIL 20MG TAB [Suspect]
     Active Substance: TADALAFIL
     Indication: PULMONARY ARTERIAL HYPERTENSION
     Route: 048
     Dates: start: 20180903
  5. LEVOTHYROXIN [Concomitant]
     Active Substance: LEVOTHYROXINE
  6. ELIQUIS [Concomitant]
     Active Substance: APIXABAN
  7. ALENDRONATE [Concomitant]
     Active Substance: ALENDRONATE SODIUM
  8. MONTELUKAST [Concomitant]
     Active Substance: MONTELUKAST SODIUM
  9. OFLOXACIN. [Concomitant]
     Active Substance: OFLOXACIN
  10. BUMETANIDE. [Concomitant]
     Active Substance: BUMETANIDE
  11. PREDNISOLONE. [Concomitant]
     Active Substance: PREDNISOLONE

REACTIONS (3)
  - Fall [None]
  - Femur fracture [None]
  - Hip fracture [None]
